FAERS Safety Report 22173478 (Version 2)
Quarter: 2023Q2

REPORT INFORMATION
  Report Type: Spontaneous
  Country: US (occurrence: US)
  Receive Date: 20230404
  Receipt Date: 20230417
  Transmission Date: 20230722
  Serious: Yes (Other)
  Sender: FDA-Public Use
  Company Number: US-002147023-NVSC2023US076343

PATIENT
  Age: 87 Year
  Sex: Male

DRUGS (3)
  1. BEOVU [Suspect]
     Active Substance: BROLUCIZUMAB-DBLL
     Indication: Age-related macular degeneration
     Dosage: TREAT AND EXTEND RIGHT EYE, OD, TIME PERIOD OF 56
     Route: 065
     Dates: start: 20200115
  2. BEOVU [Suspect]
     Active Substance: BROLUCIZUMAB-DBLL
     Dosage: TREAT AND EXTEND RIGHT EYE, OD, TIME PERIOD OF 58
     Route: 065
     Dates: start: 20200313
  3. BEOVU [Suspect]
     Active Substance: BROLUCIZUMAB-DBLL
     Dosage: TREAT AND EXTEND RIGHT EYE, OD
     Route: 065
     Dates: start: 20200623

REACTIONS (4)
  - Retinal vasculitis [Not Recovered/Not Resolved]
  - Visual impairment [Unknown]
  - Retinal vein occlusion [Not Recovered/Not Resolved]
  - Retinal haemorrhage [Unknown]

NARRATIVE: CASE EVENT DATE: 20200623
